FAERS Safety Report 8757443 (Version 3)
Quarter: 2012Q4

REPORT INFORMATION
  Report Type: 
  Country: US (occurrence: US)
  Receive Date: 20120828
  Receipt Date: 20120926
  Transmission Date: 20130627
  Serious: Yes (Hospitalization)
  Sender: FDA-Public Use
  Company Number: US-PFIZER INC-2012205085

PATIENT
  Age: 57 Year
  Sex: Female
  Weight: 43 kg

DRUGS (20)
  1. AXITINIB [Suspect]
     Indication: ADENOID CYSTIC CARCINOMA
     Dosage: 2 mg, 2x/day
     Route: 048
     Dates: start: 20120312, end: 20120820
  2. TEMSIROLIMUS [Suspect]
     Indication: ADENOID CYSTIC CARCINOMA
     Dosage: 20 mg, IV over 30 min
     Route: 042
     Dates: start: 20120312, end: 20120820
  3. VISCOUS LIDOCAINE 2% [Concomitant]
     Dosage: as needed
  4. GEMFIBROZIL [Concomitant]
     Dosage: 600 mg, 2x/day
     Route: 048
  5. PROCHLORPERAZINE MALEATE [Concomitant]
     Dosage: 10 mg, Every 6 hours, prn
  6. GLIPIZIDE [Concomitant]
     Indication: DIABETES MELLITUS
     Dosage: 10 mg,PO, BID
     Route: 048
     Dates: start: 20120218
  7. INSULIN ASPART [Concomitant]
     Dosage: 5 IU, before meals t.i.d
  8. INSULIN GLARGINE [Concomitant]
     Dosage: 30 units once daily
  9. LEVOTHYROXINE [Concomitant]
     Indication: HYPOTHYROIDISM
     Dosage: 75 ug, qDay
     Route: 048
     Dates: start: 20120218
  10. METFORMIN [Concomitant]
     Indication: DIABETES MELLITUS
     Dosage: 500 mg, 2x/day
     Route: 048
     Dates: start: 20120218
  11. LORTAB [Concomitant]
     Dosage: 7.5/500,1 tab(s),Q6hr
     Route: 048
  12. CLEOCIN [Concomitant]
     Dosage: 1% topical lotion, 1 app, BID
     Route: 061
  13. BENADRYL [Concomitant]
     Dosage: 25 mg, qHS, PRN
     Route: 048
  14. NYSTATIN [Concomitant]
  15. MAALOX [Concomitant]
  16. LIDOC [Concomitant]
  17. DIPHENHYDRAMINE [Concomitant]
     Indication: INSOMNIA
     Dosage: UNK
     Dates: start: 20120307
  18. ONDANSETRON [Concomitant]
     Dosage: 8 mg, UNK
     Route: 048
  19. PROMETHAZINE [Concomitant]
     Indication: NAUSEA
     Dosage: 25 mg, q6hr, PRN
     Route: 048
     Dates: start: 20120312
  20. PROMETHAZINE [Concomitant]
     Indication: VOMITING

REACTIONS (3)
  - Asthenia [Recovered/Resolved]
  - Dehydration [Recovered/Resolved]
  - Generalised anxiety disorder [Recovered/Resolved]
